FAERS Safety Report 8048168-2 (Version None)
Quarter: 2012Q1

REPORT INFORMATION
  Report Type: 
  Country: None (occurrence: None)
  Receive Date: 20120117
  Receipt Date: 20120106
  Transmission Date: 20120608
  Serious: Yes (Hospitalization)
  Sender: FDA-Public Use
  Company Number: US-BAYER-2011-087370

PATIENT
  Age: 33 Year
  Sex: Female

DRUGS (17)
  1. HYDRO-TUSSIN [Concomitant]
     Dosage: UNK
     Route: 048
  2. ALLEGRA [Concomitant]
     Dosage: 180 MG, QD
  3. KLONOPIN [Concomitant]
  4. NASONEX [Concomitant]
     Route: 045
  5. YASMIN [Suspect]
     Indication: PREMENSTRUAL SYNDROME
     Dosage: UNK
     Dates: start: 20020101, end: 20021201
  6. ZANAFLEX [Concomitant]
     Dosage: 10 MG, TID
     Route: 048
  7. GUAIFEN PE SR [Concomitant]
     Route: 048
  8. YASMIN [Suspect]
     Indication: HORMONE LEVEL ABNORMAL
  9. AMBIEN [Concomitant]
     Dosage: 5 MG, HS
     Route: 048
  10. LEVAQUIN [Concomitant]
     Dosage: 500 MG, QD
     Route: 048
  11. PROZAC [Concomitant]
     Dosage: 10 MG, TID
     Route: 048
  12. PREVACID [Concomitant]
     Dosage: 30 MG, QD
  13. OXYCODONE HCL AND ACETAMINOPHEN [Concomitant]
  14. YASMIN [Suspect]
  15. LEVOXYL [Concomitant]
     Dosage: 150 MCG/24HR, QD
  16. ZITHROMAX [Concomitant]
     Dosage: 150 MG, UNK
     Route: 048
  17. METHYLPREDNISOLONE [Concomitant]
     Dosage: 4 UNK, UNK
     Route: 048

REACTIONS (6)
  - DEPRESSION [None]
  - BURNOUT SYNDROME [None]
  - PNEUMONIA [None]
  - FATIGUE [None]
  - PULMONARY EMBOLISM [None]
  - PAIN [None]
